FAERS Safety Report 9069126 (Version 1)
Quarter: 2013Q1

REPORT INFORMATION
  Report Type: Spontaneous
  Country: GB (occurrence: None)
  Receive Date: 20130122
  Receipt Date: 20130122
  Transmission Date: 20140127
  Serious: Yes (Hospitalization)
  Sender: FDA-Public Use
  Company Number: 1560304

PATIENT
  Age: 10 Year
  Sex: Male
  Weight: 31.7 kg

DRUGS (9)
  1. VINCRISTINE SULFATE [Suspect]
     Indication: SARCOMA
     Dosage: 1.7 MG MILLIGRAM(S), UNKNOWN, INTRAVENOUS
     Route: 042
     Dates: start: 20121222
  2. DOXORUBICIN HYDROCHLORIDE [Suspect]
     Indication: SARCOMA
     Dosage: 33 MG MILLIGRAM(S), UNKNOWN, INTRAVENOUS
     Route: 042
     Dates: start: 20121222
  3. ENOXAPARIN SODIUM [Concomitant]
  4. BEVACIZUMAB [Suspect]
     Dosage: 232.5 MG MILLIGRAM(S), UNKNOWN, INTRAVENOUS
     Dates: start: 20121222
  5. DACTINOMYCIN [Suspect]
     Indication: SARCOMA
     Dosage: 1.7 MG MILLIGRAM(S) , UNKNOWN,
     Route: 042
     Dates: start: 20121222
  6. IFOSFAMIDE [Suspect]
     Indication: SARCOMA
     Dosage: 3300 MG MILLIGRAM(S), UNKNOWN, INTRAVENOUS
     Route: 042
     Dates: start: 20121222
  7. ENOXAPARIN SODIUM [Concomitant]
  8. CO-TRIMOXAZOLE [Concomitant]
  9. (SANDO K / 00031402/ ) [Concomitant]

REACTIONS (2)
  - Febrile neutropenia [None]
  - Haematotoxicity [None]
